FAERS Safety Report 11699717 (Version 1)
Quarter: 2015Q4

REPORT INFORMATION
  Report Type: Spontaneous
  Country: GB (occurrence: GB)
  Receive Date: 20151105
  Receipt Date: 20151105
  Transmission Date: 20160304
  Serious: Yes (Other)
  Sender: FDA-Public Use
  Company Number: GB-AUROBINDO-AUR-APL-2015-09784

PATIENT
  Age: 34 Year
  Sex: Female

DRUGS (2)
  1. MIRTAZAPINE 15MG [Suspect]
     Active Substance: MIRTAZAPINE
     Indication: DEPRESSION
     Dosage: 15 MG, ONCE A DAY
     Route: 048
  2. XARELTO [Interacting]
     Active Substance: RIVAROXABAN
     Indication: HYPERCOAGULATION
     Route: 048

REACTIONS (4)
  - Haemorrhage [Unknown]
  - Contusion [Unknown]
  - Blood disorder [Unknown]
  - Drug interaction [Unknown]
